FAERS Safety Report 17913920 (Version 1)
Quarter: 2020Q2

REPORT INFORMATION
  Report Type: Report from Study
  Country: CA (occurrence: CA)
  Receive Date: 20200618
  Receipt Date: 20200618
  Transmission Date: 20200714
  Serious: Yes (Other)
  Sender: FDA-Public Use
  Company Number: CA-JNJFOC-20200244552

PATIENT
  Age: 81 Year
  Sex: Female

DRUGS (1)
  1. REMICADE [Suspect]
     Active Substance: INFLIXIMAB
     Indication: CROHN^S DISEASE
     Route: 042
     Dates: start: 20140805, end: 2020

REACTIONS (8)
  - Bacterial test positive [Unknown]
  - Acne [Unknown]
  - Gastric disorder [Unknown]
  - Blood iron decreased [Unknown]
  - Fungal infection [Unknown]
  - Nasopharyngitis [Unknown]
  - Cellulitis [Unknown]
  - Asthenia [Unknown]

NARRATIVE: CASE EVENT DATE: 202001
